FAERS Safety Report 6712874-X (Version None)
Quarter: 2010Q2

REPORT INFORMATION
  Report Type: 
  Country: None (occurrence: None)
  Receive Date: 20100506
  Receipt Date: 20100430
  Transmission Date: 20101027
  Serious: Yes (Death, Life-Threatening, Hospitalization)
  Sender: FDA-Public Use
  Company Number: US-BRISTOL-MYERS SQUIBB COMPANY-14908438

PATIENT
  Age: 55 Year
  Sex: Female
  Weight: 77 kg

DRUGS (15)
  1. CARBOPLATIN [Suspect]
     Indication: NON-SMALL CELL LUNG CANCER
     Route: 042
     Dates: start: 20091120
  2. ALIMTA [Suspect]
     Indication: NON-SMALL CELL LUNG CANCER
     Route: 042
     Dates: start: 20091120
  3. BEVACIZUMAB [Suspect]
     Indication: NON-SMALL CELL LUNG CANCER
     Route: 042
     Dates: start: 20091120
  4. DEXAMETHASONE [Concomitant]
  5. EFFEXOR [Concomitant]
  6. FERROUS GLUCONATE [Concomitant]
  7. FOLIC ACID [Concomitant]
     Dates: start: 20091111
  8. LORAZEPAM [Concomitant]
  9. MEDROXYPROGESTERONE ACETATE [Concomitant]
  10. NORCO [Concomitant]
     Dates: start: 20091111
  11. OXYCONTIN [Concomitant]
     Dates: start: 20091116
  12. REGLAN [Concomitant]
     Dates: start: 20091118
  13. SYMBICORT [Concomitant]
  14. ASPIRIN [Concomitant]
  15. VITAMIN B-12 [Concomitant]
     Dates: start: 20091111

REACTIONS (2)
  - EMPYEMA [None]
  - RESPIRATORY FAILURE [None]
